FAERS Safety Report 8066078-1 (Version None)
Quarter: 2012Q1

REPORT INFORMATION
  Report Type: 
  Country: None (occurrence: None)
  Receive Date: 20120124
  Receipt Date: 20120118
  Transmission Date: 20120608
  Serious: Yes (Hospitalization, Other)
  Sender: FDA-Public Use
  Company Number: JP-ROCHE-1025851

PATIENT
  Age: 80 Year
  Sex: Female

DRUGS (6)
  1. RHEUMATREX [Concomitant]
     Route: 048
     Dates: start: 20060520, end: 20100520
  2. EVISTA [Concomitant]
     Route: 048
     Dates: start: 20070520
  3. ALFAROL [Concomitant]
     Route: 048
     Dates: start: 20070520
  4. ACTEMRA [Suspect]
     Indication: RHEUMATOID ARTHRITIS
     Route: 041
  5. ASPARA-CA [Concomitant]
     Route: 048
     Dates: start: 20070520
  6. DEPAS [Concomitant]
     Route: 048
     Dates: start: 20070520

REACTIONS (1)
  - PANCREATITIS ACUTE [None]
